FAERS Safety Report 7575355-X (Version None)
Quarter: 2011Q2

REPORT INFORMATION
  Report Type: 
  Country: None (occurrence: None)
  Receive Date: 20110627
  Receipt Date: 20110617
  Transmission Date: 20111010
  Serious: Yes (Hospitalization)
  Sender: FDA-Public Use
  Company Number: US-ASTRAZENECA-2011SE37131

PATIENT
  Age: 39 Year
  Sex: Female

DRUGS (1)
  1. SEROQUEL [Suspect]
     Indication: ANXIETY
     Dosage: 200 MG AT NIGHT AND 25 MG 4 TIMES A DAY
     Route: 048
     Dates: start: 20060101

REACTIONS (2)
  - MENTAL DISORDER [None]
  - DRUG DOSE OMISSION [None]
